FAERS Safety Report 18945996 (Version 1)
Quarter: 2021Q1

REPORT INFORMATION
  Report Type: Spontaneous
  Country: GB (occurrence: GB)
  Receive Date: 20210226
  Receipt Date: 20210226
  Transmission Date: 20210420
  Serious: Yes (Other)
  Sender: FDA-Public Use
  Company Number: GB-ASTELLAS-2021US006843

PATIENT
  Sex: Female

DRUGS (1)
  1. BETMIGA [Suspect]
     Active Substance: MIRABEGRON
     Indication: BLADDER IRRITATION
     Route: 065
     Dates: start: 202012

REACTIONS (2)
  - Cardiac flutter [Not Recovered/Not Resolved]
  - Product use in unapproved indication [Unknown]
